FAERS Safety Report 25429767 (Version 1)
Quarter: 2025Q2

REPORT INFORMATION
  Report Type: Spontaneous
  Country: CN (occurrence: CN)
  Receive Date: 20250612
  Receipt Date: 20250612
  Transmission Date: 20250716
  Serious: Yes (Hospitalization)
  Sender: PURDUE
  Company Number: CN-NAPPMUNDI-GBR-2025-0126192

PATIENT
  Age: 62 Year
  Sex: Male
  Weight: 42 kg

DRUGS (1)
  1. OXYCONTIN [Suspect]
     Active Substance: OXYCODONE HYDROCHLORIDE
     Indication: Cancer pain
     Dosage: 10 MILLIGRAM, BID
     Route: 048
     Dates: start: 20250526, end: 20250527

REACTIONS (4)
  - Palpitations [Recovering/Resolving]
  - Headache [Recovering/Resolving]
  - Irritability [Recovering/Resolving]
  - Dyspnoea [Recovering/Resolving]

NARRATIVE: CASE EVENT DATE: 20250526
